FAERS Safety Report 15440771 (Version 1)
Quarter: 2018Q3

REPORT INFORMATION
  Report Type: Spontaneous
  Country: US (occurrence: US)
  Receive Date: 20180925
  Receipt Date: 20180925
  Transmission Date: 20181010
  Serious: Yes (Life-Threatening, Other)
  Sender: FDA-Public Use
  Company Number: None

PATIENT
  Age: 48 Year
  Sex: Female
  Weight: 99 kg

DRUGS (1)
  1. NOVOLOG [Suspect]
     Active Substance: INSULIN ASPART
     Indication: DIABETES MELLITUS
     Dosage: ?          OTHER FREQUENCY:WITH MEALS;?
     Route: 058
     Dates: start: 20180521, end: 20180607

REACTIONS (2)
  - Anaphylactic shock [None]
  - Urticaria [None]

NARRATIVE: CASE EVENT DATE: 20180607
